FAERS Safety Report 5124125-0 (Version None)
Quarter: 2006Q4

REPORT INFORMATION
  Report Type: 
  Country: None (occurrence: None)
  Receive Date: 20061010
  Receipt Date: 20060309
  Transmission Date: 20070319
  Serious: No
  Sender: FDA-Public Use
  Company Number: US-BRISTOL-MYERS SQUIBB COMPANY-13309497

PATIENT
  Age: 62 Year
  Weight: 84 kg

DRUGS (10)
  1. AVAPRO [Suspect]
     Dosage: INCREASED TO 300 MG ONCE DAILY IN MAR-2006
  2. TOPROL-XL [Concomitant]
  3. ATENOLOL [Concomitant]
     Dates: start: 20060201, end: 20060301
  4. ESTER-C [Concomitant]
  5. GREEN TEA [Concomitant]
  6. GRAPESEED EXTRACT [Concomitant]
  7. PEPPERMINT [Concomitant]
  8. FISH OIL [Concomitant]
  9. VITAMIN B COMPLEX CAP [Concomitant]
  10. HYDROCHLOROTHIAZIDE [Concomitant]

REACTIONS (5)
  - ALOPECIA [None]
  - HYPOAESTHESIA [None]
  - NERVE COMPRESSION [None]
  - PARAESTHESIA [None]
  - SPINAL COLUMN STENOSIS [None]
